FAERS Safety Report 4369006-5 (Version None)
Quarter: 2004Q2

REPORT INFORMATION
  Report Type: 
  Country: None (occurrence: None)
  Receive Date: 20040527
  Receipt Date: 20040518
  Transmission Date: 20050107
  Serious: Yes (Life-Threatening, Other)
  Sender: FDA-Public Use
  Company Number: 2004-04-1681

PATIENT
  Age: 47 Year
  Sex: Female
  Weight: 69.4003 kg

DRUGS (7)
  1. SOLGANAL (AUROTHIOGLUCOSE) [Suspect]
     Indication: PEMPHIGUS
     Dosage: SEE IMAGE
     Dates: start: 19990927, end: 19990927
  2. SOLGANAL (AUROTHIOGLUCOSE) [Suspect]
     Indication: PEMPHIGUS
     Dosage: SEE IMAGE
     Dates: start: 19991006, end: 19991006
  3. SOLGANAL (AUROTHIOGLUCOSE) [Suspect]
     Indication: PEMPHIGUS
     Dosage: SEE IMAGE
     Dates: start: 19991013, end: 19991013
  4. SOLGANAL (AUROTHIOGLUCOSE) [Suspect]
     Indication: PEMPHIGUS
     Dosage: SEE IMAGE
     Dates: start: 19991020, end: 19991020
  5. PREDNISONE [Suspect]
     Indication: PEMPHIGUS
     Dosage: SEE IMAGE
     Route: 048
     Dates: start: 19990920, end: 19991006
  6. PREDNISONE [Suspect]
     Indication: PEMPHIGUS
     Dosage: SEE IMAGE
     Route: 048
     Dates: start: 19991006, end: 19991115
  7. PREDNISONE [Suspect]
     Indication: PEMPHIGUS
     Dosage: SEE IMAGE
     Route: 048
     Dates: start: 19991115

REACTIONS (4)
  - CANDIDIASIS [None]
  - CUSHINGOID [None]
  - DISCOMFORT [None]
  - TOXIC SKIN ERUPTION [None]
